FAERS Safety Report 7450550-9 (Version None)
Quarter: 2011Q2

REPORT INFORMATION
  Report Type: 
  Country: None (occurrence: None)
  Receive Date: 20110502
  Receipt Date: 20110428
  Transmission Date: 20111010
  Serious: Yes (Death, Other)
  Sender: FDA-Public Use
  Company Number: PHHY2011JP25396

PATIENT
  Age: 67 Year
  Sex: Male

DRUGS (5)
  1. NEORAL [Suspect]
     Indication: INTERSTITIAL LUNG DISEASE
     Dosage: UNK
     Route: 048
     Dates: start: 20110201, end: 20110324
  2. PRODIF [Suspect]
  3. BAKTAR [Concomitant]
     Route: 048
  4. CRAVIT [Concomitant]
     Route: 048
  5. VANCOMYCIN [Suspect]

REACTIONS (8)
  - RENAL DISORDER [None]
  - ASPARTATE AMINOTRANSFERASE INCREASED [None]
  - LIVER DISORDER [None]
  - ALANINE AMINOTRANSFERASE INCREASED [None]
  - DEATH [None]
  - BLOOD CREATININE DECREASED [None]
  - BLOOD LACTATE DEHYDROGENASE DECREASED [None]
  - PLATELET COUNT DECREASED [None]
